FAERS Safety Report 6761914-0 (Version None)
Quarter: 2010Q2

REPORT INFORMATION
  Report Type: 
  Country: None (occurrence: None)
  Receive Date: 20100609
  Receipt Date: 20100521
  Transmission Date: 20101027
  Serious: Yes (Other)
  Sender: FDA-Public Use
  Company Number: US-RB-010319-10

PATIENT
  Age: 73 Year
  Sex: Male

DRUGS (5)
  1. MUCINEX [Suspect]
     Dosage: CONSUMER IS TAKING ONE TABLET AT BED TIME.
     Route: 048
     Dates: start: 20100422
  2. ALBUTEROL INHALANTS [Concomitant]
  3. LOPRESSOR [Concomitant]
     Indication: BLOOD PRESSURE
  4. ESTRIN [Concomitant]
     Indication: HEADACHE
  5. LISINOPRIL [Concomitant]
     Indication: BLOOD PRESSURE

REACTIONS (3)
  - BLOOD PRESSURE SYSTOLIC INCREASED [None]
  - HEART RATE INCREASED [None]
  - INCORRECT DRUG ADMINISTRATION DURATION [None]
